FAERS Safety Report 6902002-X (Version None)
Quarter: 2010Q3

REPORT INFORMATION
  Report Type: 
  Country: None (occurrence: None)
  Receive Date: 20100803
  Receipt Date: 20080414
  Transmission Date: 20110219
  Serious: No
  Sender: FDA-Public Use
  Company Number: US-PFIZER INC-2008033313

PATIENT
  Sex: Male
  Weight: 136.36 kg

DRUGS (8)
  1. LYRICA [Suspect]
     Indication: PERONEAL MUSCULAR ATROPHY
     Route: 048
     Dates: start: 20080323
  2. ALOE BARBADENSIS [Concomitant]
  3. VICODIN [Concomitant]
  4. MONOPRIL [Concomitant]
  5. LOPRESSOR [Concomitant]
  6. GLUCOTROL XL [Concomitant]
  7. AVANDIA [Concomitant]
  8. VALIUM [Concomitant]

REACTIONS (3)
  - ARTHRALGIA [None]
  - DRUG INEFFECTIVE [None]
  - PAIN IN EXTREMITY [None]
